FAERS Safety Report 9261298 (Version 1)
Quarter: 2013Q2

REPORT INFORMATION
  Report Type: Spontaneous
  Country: US (occurrence: US)
  Receive Date: 20130429
  Receipt Date: 20130429
  Transmission Date: 20140414
  Serious: Yes (Death, Congenital Anomaly, Other)
  Sender: FDA-Public Use
  Company Number: US-PFIZER INC-2013130024

PATIENT
  Sex: Male

DRUGS (1)
  1. ZOLOFT [Suspect]
     Dosage: UNK
     Route: 064

REACTIONS (11)
  - Maternal exposure during pregnancy [Fatal]
  - Transposition of the great vessels [Fatal]
  - Ventricular septal defect [Fatal]
  - Double outlet right ventricle [Fatal]
  - Neonatal respiratory distress syndrome [Fatal]
  - Pulmonary malformation [Fatal]
  - Heart disease congenital [Fatal]
  - Atrial septal defect [Fatal]
  - Atrial septal defect [Fatal]
  - Myocardial infarction [Unknown]
  - Cerebrovascular accident [Unknown]
